FAERS Safety Report 16495832 (Version 2)
Quarter: 2020Q2

REPORT INFORMATION
  Report Type: Report from Study
  Country: NL (occurrence: NL)
  Receive Date: 20190628
  Receipt Date: 20200529
  Transmission Date: 20200713
  Serious: Yes (Hospitalization, Other)
  Sender: FDA-Public Use
  Company Number: NL-BAUSCH-BL-2019-018321

PATIENT
  Sex: Male
  Weight: 90 kg

DRUGS (10)
  1. DUODOPA [Suspect]
     Active Substance: CARBIDOPA\LEVODOPA
     Dosage: MORNING DOSE: 12 CONTINUOUS DOSE: 5.3 EXTRA DOSE: 4 NIGHT DOSE: 4.4
     Route: 050
     Dates: start: 20110418
  2. DUODOPA [Suspect]
     Active Substance: CARBIDOPA\LEVODOPA
     Indication: PARKINSON^S DISEASE
     Dosage: MD: 11.0, CD: 6.0, ED: 4.0, CND: 4.6, 24 HOUR ADMINISTRATION
     Route: 050
  3. SIFROL [Concomitant]
     Active Substance: PRAMIPEXOLE
     Indication: PRODUCT USED FOR UNKNOWN INDICATION
     Dosage: DRUG DISCONTINUED
  4. DUODOPA [Suspect]
     Active Substance: CARBIDOPA\LEVODOPA
     Dosage: MD REDUCED WITH 1ML TO 11ML, ND INCREASED WITH 0.2ML TO 4.6
     Route: 050
  5. QUETIAPINE. [Concomitant]
     Active Substance: QUETIAPINE
     Indication: PRODUCT USED FOR UNKNOWN INDICATION
  6. DESMOPRESSINE [Suspect]
     Active Substance: DESMOPRESSIN
     Indication: PRODUCT USED FOR UNKNOWN INDICATION
     Route: 065
  7. DUODOPA [Suspect]
     Active Substance: CARBIDOPA\LEVODOPA
     Dosage: ND INCREASED WITH 0.2ML, MORNING DOSE: 11 CONTINUOUS DOSE: 5.7 EXTRA DOSE: 4
     Route: 050
  8. RIVOTRIL [Concomitant]
     Active Substance: CLONAZEPAM
     Indication: PRODUCT USED FOR UNKNOWN INDICATION
     Dosage: FOR THE NIGHT
  9. DUODOPA [Suspect]
     Active Substance: CARBIDOPA\LEVODOPA
     Dosage: MORNING DOSE: 11.0 ML, CONTINUOUS DAY DOSE: 6.0 ML, CONTINUOUS NIGHT DOSE: 4.6 ML
     Route: 050
  10. OLANZAPINE. [Concomitant]
     Active Substance: OLANZAPINE
     Indication: PRODUCT USED FOR UNKNOWN INDICATION

REACTIONS (58)
  - Grimacing [Unknown]
  - Dysarthria [Not Recovered/Not Resolved]
  - Motor dysfunction [Not Recovered/Not Resolved]
  - Insomnia [Not Recovered/Not Resolved]
  - Somnolence [Not Recovered/Not Resolved]
  - Weight increased [Not Recovered/Not Resolved]
  - Restlessness [Not Recovered/Not Resolved]
  - Stoma site haemorrhage [Not Recovered/Not Resolved]
  - Abnormal faeces [Unknown]
  - Nocturia [Not Recovered/Not Resolved]
  - Middle insomnia [Not Recovered/Not Resolved]
  - Fluid retention [Unknown]
  - Muscle spasms [Not Recovered/Not Resolved]
  - Suicidal ideation [Not Recovered/Not Resolved]
  - Sluggishness [Not Recovered/Not Resolved]
  - Suspiciousness [Not Recovered/Not Resolved]
  - Dementia [Not Recovered/Not Resolved]
  - Fibroma [Not Recovered/Not Resolved]
  - Thinking abnormal [Not Recovered/Not Resolved]
  - Stoma site discomfort [Recovered/Resolved]
  - Mood swings [Not Recovered/Not Resolved]
  - On and off phenomenon [Recovered/Resolved]
  - Hallucination, auditory [Not Recovered/Not Resolved]
  - Gait disturbance [Not Recovered/Not Resolved]
  - Muscle rigidity [Not Recovered/Not Resolved]
  - Constipation [Recovered/Resolved]
  - Nightmare [Not Recovered/Not Resolved]
  - Psychotic disorder [Recovering/Resolving]
  - Freezing phenomenon [Not Recovered/Not Resolved]
  - Therapeutic response shortened [Unknown]
  - Hallucination [Not Recovered/Not Resolved]
  - Dyskinesia [Not Recovered/Not Resolved]
  - Hypokinesia [Not Recovered/Not Resolved]
  - Memory impairment [Not Recovered/Not Resolved]
  - Tension [Unknown]
  - Disturbance in attention [Not Recovered/Not Resolved]
  - Cognitive disorder [Not Recovered/Not Resolved]
  - Stoma site erythema [Not Recovered/Not Resolved]
  - Musculoskeletal stiffness [Not Recovered/Not Resolved]
  - Pain in extremity [Not Recovered/Not Resolved]
  - Hypoacusis [Not Recovered/Not Resolved]
  - Incontinence [Not Recovered/Not Resolved]
  - Dystonia [Unknown]
  - Delusion [Not Recovered/Not Resolved]
  - Poor quality sleep [Not Recovered/Not Resolved]
  - Device connection issue [Unknown]
  - Device leakage [Unknown]
  - Dependent personality disorder [Not Recovered/Not Resolved]
  - Paraesthesia [Not Recovered/Not Resolved]
  - Mobility decreased [Not Recovered/Not Resolved]
  - Affect lability [Not Recovered/Not Resolved]
  - Initial insomnia [Not Recovered/Not Resolved]
  - Overdose [Not Recovered/Not Resolved]
  - Loss of personal independence in daily activities [Not Recovered/Not Resolved]
  - Speech disorder [Not Recovered/Not Resolved]
  - Vitamin B6 decreased [Unknown]
  - Stoma site discharge [Not Recovered/Not Resolved]
  - General physical health deterioration [Not Recovered/Not Resolved]

NARRATIVE: CASE EVENT DATE: 20160505
